FAERS Safety Report 6502620-7 (Version None)
Quarter: 2009Q4

REPORT INFORMATION
  Report Type: 
  Country: None (occurrence: None)
  Receive Date: 20091217
  Receipt Date: 20091215
  Transmission Date: 20100525
  Serious: Yes (Death, Life-Threatening, Hospitalization)
  Sender: FDA-Public Use
  Company Number: GB-BAYER-200810465GPV

PATIENT
  Age: 25 Year
  Sex: Male

DRUGS (13)
  1. CIPROFLOXACIN [Suspect]
     Indication: PNEUMOCYSTIS JIROVECI PNEUMONIA
     Route: 065
  2. CLARITHROMYCIN [Suspect]
     Indication: PNEUMOCYSTIS JIROVECI PNEUMONIA
     Route: 065
  3. IBUPROFEN [Suspect]
     Indication: PAIN IN EXTREMITY
     Route: 065
  4. COMBIVIR [Suspect]
     Indication: ACQUIRED IMMUNODEFICIENCY SYNDROME
     Route: 065
     Dates: start: 20030311, end: 20030327
  5. EFAVIRENZ [Suspect]
     Indication: ACQUIRED IMMUNODEFICIENCY SYNDROME
     Route: 065
     Dates: start: 20030311, end: 20030327
  6. CO-TRIMOXAZOLE [Suspect]
     Indication: ANTIFUNGAL PROPHYLAXIS
     Route: 065
  7. NEVIRAPINE [Suspect]
     Indication: ACQUIRED IMMUNODEFICIENCY SYNDROME
     Dosage: UNIT DOSE: 200 MG
     Route: 065
     Dates: start: 20030408, end: 20030417
  8. TENOFOVIR [Suspect]
     Indication: ACQUIRED IMMUNODEFICIENCY SYNDROME
     Dosage: UNIT DOSE: 300 MG
     Route: 065
     Dates: start: 20030408, end: 20030417
  9. LAMIVUDINE [Suspect]
     Indication: ACQUIRED IMMUNODEFICIENCY SYNDROME
     Dosage: UNIT DOSE: 300 MG
     Route: 048
     Dates: start: 20030408, end: 20030417
  10. LOPERAMIDE HYDROCHLORIDE [Concomitant]
     Indication: DIARRHOEA
     Route: 065
  11. BACTRIM (SULPHAMETHOXAZOLE, TRIMETHOPRIM) [Concomitant]
     Indication: DRUG USE FOR UNKNOWN INDICATION
     Route: 065
  12. SEPTRIN [Concomitant]
     Indication: HIV INFECTION
     Route: 048
     Dates: start: 20030408, end: 20030417
  13. ZIDOVUDINE [Concomitant]

REACTIONS (17)
  - AGITATION [None]
  - ALANINE AMINOTRANSFERASE INCREASED [None]
  - BIOPSY LIVER ABNORMAL [None]
  - BLOOD ALKALINE PHOSPHATASE INCREASED [None]
  - BLOOD BILIRUBIN INCREASED [None]
  - CHOLANGITIS [None]
  - CONFUSIONAL STATE [None]
  - COUGH [None]
  - HAEMOGLOBIN DECREASED [None]
  - HEPATIC FAILURE [None]
  - HEPATOTOXICITY [None]
  - PAIN IN EXTREMITY [None]
  - PYREXIA [None]
  - SCLERAL DISCOLOURATION [None]
  - SEPSIS [None]
  - VANISHING BILE DUCT SYNDROME [None]
  - VOMITING [None]
